FAERS Safety Report 8292374-9 (Version None)
Quarter: 2012Q2

REPORT INFORMATION
  Report Type: 
  Country: None (occurrence: None)
  Receive Date: 20120417
  Receipt Date: 20120409
  Transmission Date: 20120825
  Serious: Yes (Other)
  Sender: FDA-Public Use
  Company Number: CHPA2012US006594

PATIENT
  Sex: Female

DRUGS (3)
  1. COUMADIN [Concomitant]
  2. ALLERGY MEDICATION [Concomitant]
     Dosage: 1 DF, QD
  3. PREVACID 24 HR [Suspect]
     Indication: GASTROOESOPHAGEAL REFLUX DISEASE
     Dosage: 15 MG, QD
     Route: 048

REACTIONS (10)
  - HEART RATE INCREASED [None]
  - FLUID RETENTION [None]
  - CYSTITIS [None]
  - DISEASE RECURRENCE [None]
  - FEELING ABNORMAL [None]
  - URINARY TRACT INFECTION [None]
  - WEIGHT DECREASED [None]
  - INCORRECT DRUG ADMINISTRATION DURATION [None]
  - DYSPNOEA [None]
  - OFF LABEL USE [None]
